FAERS Safety Report 5475498-0 (Version None)
Quarter: 2007Q3

REPORT INFORMATION
  Report Type: 
  Country: None (occurrence: None)
  Receive Date: 20070914
  Receipt Date: 20070625
  Transmission Date: 20080115
  Serious: Yes (Hospitalization)
  Sender: FDA-Public Use
  Company Number: 07P-163-0372691-00

PATIENT
  Age: 54 Year
  Sex: Female
  Weight: 68.0396 kg

DRUGS (3)
  1. SYNTHROID [Suspect]
     Indication: HYPOTHYROIDISM
     Dosage: INCORRECT DOSE, PER ORAL; 88 MCG, PER ORAL; 100 MCG, PER ORAL
     Route: 048
     Dates: start: 19970101, end: 20070301
  2. SYNTHROID [Suspect]
     Indication: HYPOTHYROIDISM
     Dosage: INCORRECT DOSE, PER ORAL; 88 MCG, PER ORAL; 100 MCG, PER ORAL
     Route: 048
     Dates: start: 20070301, end: 20070623
  3. SYNTHROID [Suspect]
     Indication: HYPOTHYROIDISM
     Dosage: INCORRECT DOSE, PER ORAL; 88 MCG, PER ORAL; 100 MCG, PER ORAL
     Route: 048
     Dates: start: 20070623

REACTIONS (4)
  - ASTHENIA [None]
  - CHEST PAIN [None]
  - DIZZINESS [None]
  - HYPERTENSION [None]
